FAERS Safety Report 5134585-7 (Version None)
Quarter: 2006Q4

REPORT INFORMATION
  Report Type: 
  Country: None (occurrence: None)
  Receive Date: 20061025
  Receipt Date: 20060612
  Transmission Date: 20070319
  Serious: Yes (Other)
  Sender: FDA-Public Use
  Company Number: US-GLAXOSMITHKLINE-A0608892A

PATIENT
  Sex: Male

DRUGS (8)
  1. AVANDAMET [Suspect]
     Indication: DIABETES MELLITUS
     Dosage: 1TAB TWICE PER DAY
     Route: 048
     Dates: end: 20060101
  2. AVANDIA [Suspect]
     Route: 048
  3. STARLIX [Concomitant]
  4. LIPITOR [Concomitant]
  5. ACCUPRIL [Concomitant]
  6. ASPIRIN [Concomitant]
  7. PLAVIX [Concomitant]
  8. PROTONIX [Concomitant]

REACTIONS (2)
  - CATARACT [None]
  - MACULAR OEDEMA [None]
